FAERS Safety Report 4306646-3 (Version None)
Quarter: 2004Q1

REPORT INFORMATION
  Report Type: 
  Country: None (occurrence: None)
  Receive Date: 20040225
  Receipt Date: 20031014
  Transmission Date: 20041129
  Serious: No
  Sender: FDA-Public Use
  Company Number: US-BRISTOL-MYERS SQUIBB COMPANY-12433462

PATIENT
  Age: 39 Year
  Sex: Male
  Weight: 93 kg

DRUGS (2)
  1. EXCEDRIN (MIGRAINE) [Suspect]
     Indication: MIGRAINE
     Route: 048
  2. IMITREX [Concomitant]
     Route: 051

REACTIONS (1)
  - DRUG INEFFECTIVE [None]
